FAERS Safety Report 4408202-5 (Version None)
Quarter: 2004Q3

REPORT INFORMATION
  Report Type: 
  Country: None (occurrence: None)
  Receive Date: 20040722
  Receipt Date: 20040716
  Transmission Date: 20050211
  Serious: Yes (Hospitalization)
  Sender: FDA-Public Use
  Company Number: 2004SE04115

PATIENT
  Age: 80 Year
  Sex: Female

DRUGS (6)
  1. SEROQUEL [Suspect]
     Indication: PSYCHOTIC DISORDER
     Dosage: 25 MG DAILY PO
     Route: 048
     Dates: start: 20040617
  2. SEROQUEL [Suspect]
     Indication: PSYCHOTIC DISORDER
     Dosage: 75 MG DAILY PO
     Route: 048
     Dates: end: 20040623
  3. ALOPAM [Concomitant]
  4. LASIX [Concomitant]
  5. SELOKEN [Concomitant]
  6. MADOPAR [Concomitant]

REACTIONS (4)
  - ATRIAL FIBRILLATION [None]
  - CEREBROVASCULAR ACCIDENT [None]
  - HYPOTONIA [None]
  - VENTRICULAR TACHYCARDIA [None]
